FAERS Safety Report 9476924 (Version 2)
Quarter: 2013Q3

REPORT INFORMATION
  Report Type: Spontaneous
  Country: US (occurrence: US)
  Receive Date: 20130826
  Receipt Date: 20130826
  Transmission Date: 20140515
  Serious: Yes (Other)
  Sender: FDA-Public Use
  Company Number: US-009507513-1006USA00610

PATIENT
  Sex: Female
  Weight: 74.83 kg

DRUGS (10)
  1. FOSAMAX [Suspect]
     Indication: OSTEOPOROSIS
     Dosage: 10 MG, UNK
     Route: 048
     Dates: start: 20020205, end: 20020517
  2. FOSAMAX [Suspect]
     Dosage: 70 MG, UNK
     Route: 048
     Dates: start: 20020517, end: 20070307
  3. FOSAMAX [Suspect]
     Indication: OSTEOPOROSIS
     Dosage: UNK
     Route: 048
  4. FOSAMAX PLUS D [Suspect]
     Indication: OSTEOPOROSIS
     Dosage: 70-2800 MG, QW
     Route: 048
     Dates: start: 20070317, end: 20081015
  5. ALENDRONATE SODIUM [Suspect]
     Indication: OSTEOPOROSIS
     Dosage: 70 MG, UNK
     Route: 048
     Dates: start: 20081015
  6. ALENDRONATE SODIUM [Suspect]
     Indication: OSTEOPOROSIS
     Dosage: 70 MG/75 ML, QW
     Route: 048
     Dates: start: 20091212, end: 20100404
  7. CALCIUM (UNSPECIFIED) (+) VITAMIN D (UNSPECIFIED) [Concomitant]
     Dosage: 1500 MG, QD
     Dates: start: 2001
  8. VITAMINS (UNSPECIFIED) [Concomitant]
     Dosage: 2000 IU, QD
     Dates: start: 1999
  9. PRAVASTATIN SODIUM [Concomitant]
     Indication: HYPERLIPIDAEMIA
     Dosage: 40 MG, QD
     Route: 048
  10. PRAVACHOL [Concomitant]
     Indication: HYPERLIPIDAEMIA
     Dosage: 20 MG, QD
     Route: 048

REACTIONS (37)
  - Eyelid ptosis [Unknown]
  - Femur fracture [Unknown]
  - Femur fracture [Unknown]
  - Low turnover osteopathy [Unknown]
  - Adverse event [Unknown]
  - Chills [Recovered/Resolved]
  - Gastroenteritis [Unknown]
  - Cow^s milk intolerance [Unknown]
  - Stress [Unknown]
  - Insomnia [Unknown]
  - Exposure to chemical pollution [Unknown]
  - Epicondylitis [Unknown]
  - Haemorrhoids [Unknown]
  - Plantar fasciitis [Unknown]
  - Osteoarthritis [Unknown]
  - Seborrhoeic keratosis [Unknown]
  - Chronic sinusitis [Not Recovered/Not Resolved]
  - Osteopenia [Unknown]
  - Intervertebral disc degeneration [Unknown]
  - Arthropathy [Unknown]
  - Fall [Unknown]
  - Skeletal injury [Unknown]
  - Hypercalcaemia [Unknown]
  - Hypertension [Unknown]
  - Monoclonal gammopathy [Unknown]
  - Chest pain [Unknown]
  - Cutis laxa [Unknown]
  - Brow ptosis [Unknown]
  - Tenosynovitis stenosans [Unknown]
  - Cataract [Unknown]
  - Scoliosis [Unknown]
  - Breast cyst [Unknown]
  - Adverse drug reaction [Unknown]
  - Treatment failure [Unknown]
  - Pain in extremity [Unknown]
  - Back pain [Unknown]
  - Nausea [Recovered/Resolved]
